FAERS Safety Report 7742407-0 (Version None)
Quarter: 2011Q3

REPORT INFORMATION
  Report Type: 
  Country: None (occurrence: None)
  Receive Date: 20110907
  Receipt Date: 20110907
  Transmission Date: 20111222
  Serious: Yes (Hospitalization)
  Sender: FDA-Public Use
  Company Number: None

PATIENT
  Sex: Male
  Weight: 90.7194 kg

DRUGS (2)
  1. CAPECITABINE [Suspect]
     Indication: GASTRIC CANCER
     Dosage: 725 MG ; ; ORAL
     Route: 048
     Dates: start: 20100910
  2. ERBITUX [Suspect]
     Indication: GASTRIC CANCER
     Dosage: 250 MG ; ; INTRAVENOUS
     Route: 042
     Dates: start: 20100910

REACTIONS (5)
  - CATHETER SITE PAIN [None]
  - PYREXIA [None]
  - CATHETER SITE SWELLING [None]
  - CATHETER SITE ERYTHEMA [None]
  - HAEMATOMA [None]
